FAERS Safety Report 5661557-6 (Version None)
Quarter: 2008Q1

REPORT INFORMATION
  Report Type: 
  Country: None (occurrence: None)
  Receive Date: 20080312
  Receipt Date: 20080304
  Transmission Date: 20080703
  Serious: Yes (Other)
  Sender: FDA-Public Use
  Company Number: PHNU2007DE04112

PATIENT
  Age: 61 Year
  Sex: Male
  Weight: 80 kg

DRUGS (13)
  1. ZOMETA [Suspect]
     Indication: MULTIPLE MYELOMA
     Dosage: 4 MG, QMO
     Route: 042
     Dates: start: 20061120, end: 20070226
  2. ENALAPRIL MALEATE [Suspect]
     Indication: HYPERTENSION
     Dosage: 20 MG, QD
     Route: 048
     Dates: start: 20060501, end: 20070222
  3. HYDROCHLOROTHIAZIDE [Suspect]
     Indication: HYPERTENSION
     Dosage: 12.5 MG, QD
     Route: 048
     Dates: start: 20060501, end: 20070222
  4. OMEPRAZOLE [Concomitant]
     Dosage: 40 MG, QD
     Route: 048
     Dates: start: 20061116, end: 20070114
  5. METOPROLOL TARTRATE [Concomitant]
     Indication: HYPERTENSION
     Dosage: 100 MG, QD
     Route: 048
     Dates: start: 20030101, end: 20070312
  6. ACETAMINOPHEN [Concomitant]
     Dosage: UNK, TID
     Route: 048
     Dates: start: 20061116, end: 20061201
  7. SIRDALUD [Concomitant]
     Dosage: 2 MG, TID
     Route: 048
     Dates: start: 20061116, end: 20070101
  8. FORTECORTIN [Concomitant]
     Dosage: 4 MG, TID
     Dates: start: 20061116, end: 20070212
  9. BALDRIPARAN [Concomitant]
     Dates: start: 20061116, end: 20070114
  10. CALCIVIT D [Concomitant]
     Dates: start: 20070101, end: 20070312
  11. DICLAC [Concomitant]
     Dosage: 75 MG, BID
     Route: 048
     Dates: start: 20060701, end: 20061101
  12. DICLAC [Concomitant]
  13. BELOC ZOK [Concomitant]
     Dates: start: 20000101, end: 20030101

REACTIONS (5)
  - BLOOD LACTATE DEHYDROGENASE INCREASED [None]
  - HAEMOGLOBIN DECREASED [None]
  - HAEMOLYTIC ANAEMIA [None]
  - RED BLOOD CELL COUNT DECREASED [None]
  - RETICULOCYTE COUNT INCREASED [None]
